FAERS Safety Report 9308175 (Version 3)
Quarter: 2013Q3

REPORT INFORMATION
  Report Type: Spontaneous
  Country: US (occurrence: US)
  Receive Date: 20130522
  Receipt Date: 20130701
  Transmission Date: 20140515
  Serious: No
  Sender: FDA-Public Use
  Company Number: US-PFIZER INC-2013152483

PATIENT
  Age: 27 Year
  Sex: Male
  Weight: 172 kg

DRUGS (16)
  1. NAVANE [Suspect]
     Indication: PSYCHOTIC DISORDER
     Dosage: 10 MG, 3X/DAY
     Route: 048
     Dates: start: 1978, end: 201304
  2. PAXIL [Concomitant]
     Dosage: 10 MG, 3X/DAY
  3. TRILEPTAL [Concomitant]
     Dosage: 300 MG, 3X/DAY
  4. KLONOPIN [Concomitant]
     Dosage: 1 MG, 4X/DAY
  5. METOPROLOL [Concomitant]
     Dosage: 100 MG, 1X/DAY
  6. HYZAAR [Concomitant]
     Dosage: 100MG/25 MG
  7. KLOR-CON [Concomitant]
     Indication: VITAMIN SUPPLEMENTATION
     Dosage: 1 DF, 1X/DAY
  8. ABILIFY [Concomitant]
     Dosage: 20 MG, UNK
  9. TAMSULOSIN [Concomitant]
     Indication: PROSTATIC DISORDER
     Dosage: UNK
  10. LEVOTHYROXINE [Concomitant]
     Indication: HYPOTHYROIDISM
     Dosage: 100 MG, 1X/DAY
  11. GERITOL [Concomitant]
     Indication: VITAMIN SUPPLEMENTATION
     Dosage: UNK
  12. RANITIDINE [Concomitant]
     Indication: GASTROOESOPHAGEAL REFLUX DISEASE
     Dosage: 100 MG, 2X/DAY
  13. LASIX [Concomitant]
     Dosage: 40 MG, 2X/DAY
  14. NORVASC [Concomitant]
     Dosage: 10 MG, 1X/DAY
  15. METOLAZONE [Concomitant]
     Dosage: 0.5 MG, 3X/DAY
  16. BABY ASPIRIN [Concomitant]
     Dosage: UNK

REACTIONS (1)
  - Hypertension [Recovering/Resolving]
